FAERS Safety Report 18961543 (Version 4)
Quarter: 2021Q4

REPORT INFORMATION
  Report Type: Spontaneous
  Country: GB (occurrence: GB)
  Receive Date: 20210303
  Receipt Date: 20211208
  Transmission Date: 20220303
  Serious: Yes (Other)
  Sender: FDA-Public Use
  Company Number: GB-EMA-DD-20181203-TANEJA_C-100034

PATIENT
  Age: 36 Year
  Sex: Female

DRUGS (8)
  1. LEVONORGESTREL AND ETHINYL ESTRADIOL [Interacting]
     Active Substance: ETHINYL ESTRADIOL\LEVONORGESTREL
     Indication: Polycystic ovaries
     Dosage: UNK, QD (11 DAYS PRIOR TO STARTING ANTI-HCV THERAPY)
     Route: 065
     Dates: start: 20140731
  2. RIBAVIRIN [Interacting]
     Active Substance: RIBAVIRIN
     Indication: Antiviral treatment
     Dosage: 600 MILLIGRAM, QD
     Route: 048
     Dates: start: 201408
  3. DESOGESTREL [Interacting]
     Active Substance: DESOGESTREL
     Indication: Polycystic ovaries
     Dosage: 75 MICROGRAM, QD (75 DAYS PRIOR TO STARTING THE DAAS)
     Route: 065
  4. NORETHINDRONE [Interacting]
     Active Substance: NORETHINDRONE
     Indication: Polycystic ovaries
     Dosage: 5 MILLIGRAM, QD FOR 3 WEEKS EACH MONTH
     Route: 065
     Dates: start: 2010, end: 201405
  5. NORETHINDRONE [Interacting]
     Active Substance: NORETHINDRONE
     Dosage: 5 MILLIGRAM, QD
     Route: 065
     Dates: start: 201407
  6. SOFOSBUVIR [Interacting]
     Active Substance: SOFOSBUVIR
     Indication: Antiviral treatment
     Dosage: 400 MILLIGRAM, QD
     Route: 048
     Dates: start: 201408
  7. DACLATASVIR [Interacting]
     Active Substance: DACLATASVIR
     Indication: Antiviral treatment
     Dosage: 60 MILLIGRAM, QD
     Route: 048
     Dates: start: 201408
  8. LEVOTHYROXINE [Concomitant]
     Active Substance: LEVOTHYROXINE
     Indication: Product used for unknown indication
     Dosage: 150 MICROGRAM, QD
     Route: 065

REACTIONS (3)
  - Drug-induced liver injury [Not Recovered/Not Resolved]
  - Drug interaction [Unknown]
  - Off label use [Unknown]
